FAERS Safety Report 6545265-5 (Version None)
Quarter: 2010Q1

REPORT INFORMATION
  Report Type: 
  Country: None (occurrence: None)
  Receive Date: 20100121
  Receipt Date: 20091111
  Transmission Date: 20100710
  Serious: No
  Sender: FDA-Public Use
  Company Number: US-KINGPHARMUSA00001-K200901414

PATIENT
  Sex: Male
  Weight: 43.084 kg

DRUGS (1)
  1. EPIPEN JR. [Suspect]
     Indication: ARTHROPOD STING
     Dosage: 0.15 MG, SINGLE
     Dates: start: 20090801, end: 20090801

REACTIONS (4)
  - ACCIDENTAL EXPOSURE [None]
  - INJECTION SITE ISCHAEMIA [None]
  - INJECTION SITE PALLOR [None]
  - SKELETAL INJURY [None]
